FAERS Safety Report 8830550 (Version 1)
Quarter: 2012Q4

REPORT INFORMATION
  Report Type: 
  Country: US (occurrence: US)
  Receive Date: 20121009
  Receipt Date: 20121009
  Transmission Date: 20130627
  Serious: Yes (Other)
  Sender: FDA-Public Use
  Company Number: US-BRISTOL-MYERS SQUIBB COMPANY-16917825

PATIENT
  Age: 70 Year
  Sex: Female

DRUGS (10)
  1. ORENCIA [Suspect]
     Indication: RHEUMATOID ARTHRITIS
     Dosage: Inf Dates:25May,12Jun,17Jul,14Aug,Sep10.
     Route: 042
  2. METFORMIN HCL [Suspect]
  3. PREDNISONE [Concomitant]
  4. ARAVA [Concomitant]
  5. VITAMIN D [Concomitant]
  6. OMEGA-3 [Concomitant]
     Dosage: Capsules.
  7. MILK THISTLE [Concomitant]
     Dosage: Capsules.
  8. LEFLUNOMIDE [Concomitant]
     Dosage: Tabs.
  9. CALCIUM [Concomitant]
  10. ACIDOPHILUS [Concomitant]
     Dosage: Capsule.

REACTIONS (3)
  - Blood pressure decreased [Unknown]
  - Chest discomfort [Unknown]
  - Nausea [Unknown]
